FAERS Safety Report 24107387 (Version 2)
Quarter: 2024Q3

REPORT INFORMATION
  Report Type: Spontaneous
  Country: AT (occurrence: AT)
  Receive Date: 20240718
  Receipt Date: 20240731
  Transmission Date: 20241016
  Serious: No
  Sender: JOHNSON AND JOHNSON
  Company Number: AT-JNJFOC-20240730831

PATIENT
  Sex: Female

DRUGS (1)
  1. DARZALEX [Suspect]
     Active Substance: DARATUMUMAB
     Indication: Transplant rejection
     Dosage: 1-MONTH 1X/WEEK; THEN UNTIL MO 3 1X/MONTH
     Route: 041

REACTIONS (1)
  - Off label use [Unknown]
